FAERS Safety Report 25282864 (Version 1)
Quarter: 2025Q2

REPORT INFORMATION
  Report Type: Spontaneous
  Country: US (occurrence: US)
  Receive Date: 20250508
  Receipt Date: 20250508
  Transmission Date: 20250717
  Serious: Yes (Hospitalization, Other)
  Sender: PFIZER
  Company Number: US-PFIZER INC-PV202500052444

PATIENT
  Age: 17 Year
  Sex: Male
  Weight: 55 kg

DRUGS (10)
  1. HYDROCORTISONE SODIUM SUCCINATE [Interacting]
     Active Substance: HYDROCORTISONE SODIUM SUCCINATE
     Indication: Asthma
     Dosage: 250 MG, 4X/DAY, Q6H
     Route: 042
  2. AMINOPHYLLINE [Interacting]
     Active Substance: AMINOPHYLLINE
     Indication: Asthma
     Route: 040
  3. AMINOPHYLLINE [Interacting]
     Active Substance: AMINOPHYLLINE
     Route: 042
  4. PREDNISOLONE [Interacting]
     Active Substance: PREDNISOLONE
     Indication: Asthma
     Dosage: 15 MG, DAILY
     Route: 042
  5. PANCURONIUM [Interacting]
     Active Substance: PANCURONIUM
     Route: 040
  6. PANCURONIUM [Interacting]
     Active Substance: PANCURONIUM
     Route: 042
  7. TERBUTALINE [Concomitant]
     Active Substance: TERBUTALINE
     Indication: Asthma
     Route: 058
  8. ISOETHARINE [Concomitant]
     Active Substance: ISOETHARINE
     Indication: Asthma
     Route: 055
  9. DIAZEPAM [Concomitant]
     Active Substance: DIAZEPAM
     Indication: Sedation
  10. MORPHINE [Concomitant]
     Active Substance: MORPHINE
     Indication: Sedation

REACTIONS (1)
  - Drug interaction [Unknown]
